FAERS Safety Report 5264747-X (Version None)
Quarter: 2007Q1

REPORT INFORMATION
  Report Type: 
  Country: None (occurrence: None)
  Receive Date: 20070314
  Receipt Date: 20070301
  Transmission Date: 20070707
  Serious: Yes (Other)
  Sender: FDA-Public Use
  Company Number: JP-NOVOPROD-261259

PATIENT
  Sex: Male

DRUGS (1)
  1. GLUCAGON [Suspect]
     Indication: X-RAY
     Dosage: 1 MG, UNK
     Route: 042

REACTIONS (2)
  - JAW FRACTURE [None]
  - LOSS OF CONSCIOUSNESS [None]
